FAERS Safety Report 6409749-2 (Version None)
Quarter: 2009Q4

REPORT INFORMATION
  Report Type: 
  Country: None (occurrence: None)
  Receive Date: 20091022
  Receipt Date: 20091013
  Transmission Date: 20100525
  Serious: Yes (Hospitalization)
  Sender: FDA-Public Use
  Company Number: PHEH2009US13695

PATIENT
  Sex: Female

DRUGS (1)
  1. FEMARA [Suspect]
     Indication: BREAST CANCER METASTATIC
     Dosage: 2.5 MG, QD
     Route: 048
     Dates: start: 20090701

REACTIONS (5)
  - ARTHRALGIA [None]
  - MUSCLE SPASMS [None]
  - OSTEOARTHRITIS [None]
  - PAIN [None]
  - SCIATICA [None]
